FAERS Safety Report 23432526 (Version 1)
Quarter: 2024Q1

REPORT INFORMATION
  Report Type: Spontaneous
  Country: US (occurrence: US)
  Receive Date: 20240123
  Receipt Date: 20240123
  Transmission Date: 20240410
  Serious: Yes (Death, Life-Threatening, Hospitalization, Other)
  Sender: FDA-Public Use
  Company Number: US-PFIZER INC-202400019187

PATIENT
  Age: 9 Decade
  Sex: Male

DRUGS (9)
  1. MEROPENEM [Suspect]
     Active Substance: MEROPENEM
     Indication: Nocardiosis
     Dosage: UNK
  2. SULFAMETHOXAZOLE\TRIMETHOPRIM [Suspect]
     Active Substance: SULFAMETHOXAZOLE\TRIMETHOPRIM
     Indication: Nocardiosis
     Dosage: UNK
  3. LINEZOLID [Suspect]
     Active Substance: LINEZOLID
     Indication: Nocardiosis
     Dosage: UNK
  4. LINEZOLID [Suspect]
     Active Substance: LINEZOLID
     Indication: Pneumonia
  5. LINEZOLID [Suspect]
     Active Substance: LINEZOLID
     Indication: Cellulitis
  6. IMIPENEM [Suspect]
     Active Substance: IMIPENEM
     Indication: Nocardiosis
     Dosage: UNK
  7. TEDIZOLID [Suspect]
     Active Substance: TEDIZOLID
     Indication: Nocardiosis
     Dosage: UNK
  8. CEFTRIAXONE [Concomitant]
     Active Substance: CEFTRIAXONE\CEFTRIAXONE SODIUM
     Indication: Pneumonia
     Dosage: UNK
  9. CEFTRIAXONE [Concomitant]
     Active Substance: CEFTRIAXONE\CEFTRIAXONE SODIUM
     Indication: Cellulitis

REACTIONS (2)
  - Drug ineffective for unapproved indication [Fatal]
  - Off label use [Unknown]
